FAERS Safety Report 17596781 (Version 1)
Quarter: 2020Q1

REPORT INFORMATION
  Report Type: Spontaneous
  Country: US (occurrence: US)
  Receive Date: 20200330
  Receipt Date: 20200330
  Transmission Date: 20200409
  Serious: No
  Sender: FDA-Public Use
  Company Number: US-TEVA-2020-US-1212654

PATIENT
  Sex: Female

DRUGS (1)
  1. COPAXONE [Suspect]
     Active Substance: GLATIRAMER ACETATE
     Dosage: 20 MG INITIALLY; LATER 40 MG THRICE A WEEK AND LATER HALF A SHOT 2 TIMES A WEEK FOR 2 WEEKS
     Route: 065
     Dates: start: 1998

REACTIONS (7)
  - Injection site pain [Unknown]
  - Pain [Unknown]
  - Chest pain [Unknown]
  - Back pain [Recovered/Resolved]
  - Flushing [Unknown]
  - Wrong dose [Unknown]
  - Wrong schedule [Unknown]
